FAERS Safety Report 7024342-9 (Version None)
Quarter: 2010Q4

REPORT INFORMATION
  Report Type: 
  Country: None (occurrence: None)
  Receive Date: 20101001
  Receipt Date: 20100920
  Transmission Date: 20110411
  Serious: Yes (Other)
  Sender: FDA-Public Use
  Company Number: BR-AMGEN-QUU442221

PATIENT
  Age: 44 Year
  Sex: Female
  Weight: 62 kg

DRUGS (1)
  1. ENBREL [Suspect]
     Indication: RHEUMATOID ARTHRITIS
     Route: 058
     Dates: start: 20100915

REACTIONS (2)
  - DIARRHOEA [None]
  - RENAL COLIC [None]
